FAERS Safety Report 13564058 (Version 3)
Quarter: 2017Q2

REPORT INFORMATION
  Report Type: Spontaneous
  Country: US (occurrence: US)
  Receive Date: 20170519
  Receipt Date: 20170606
  Transmission Date: 20170830
  Serious: No
  Sender: FDA-Public Use
  Company Number: US-GLAXOSMITHKLINE-US2017GSK073022

PATIENT
  Sex: Female

DRUGS (2)
  1. MEPRON [Suspect]
     Active Substance: ATOVAQUONE
     Indication: BABESIOSIS
     Dosage: 1 DF ( TEASPOON), BID
     Dates: start: 2015
  2. MEPRON [Suspect]
     Active Substance: ATOVAQUONE
     Dosage: UNK, U (HALF DOSAGE)

REACTIONS (10)
  - Pain [Unknown]
  - Discomfort [Unknown]
  - Drug effect incomplete [Unknown]
  - General physical health deterioration [Unknown]
  - Insomnia [Unknown]
  - Product use in unapproved indication [Unknown]
  - Intentional underdose [Recovered/Resolved]
  - Restlessness [Unknown]
  - Off label use [Unknown]
  - Drug dose omission [Not Recovered/Not Resolved]
